FAERS Safety Report 16544702 (Version 1)
Quarter: 2019Q3

REPORT INFORMATION
  Report Type: Spontaneous
  Country: US (occurrence: US)
  Receive Date: 20190708
  Receipt Date: 20190708
  Transmission Date: 20191004
  Serious: Yes (Hospitalization)
  Sender: FDA-Public Use
  Company Number: None

PATIENT
  Age: 52 Year
  Sex: Female

DRUGS (2)
  1. TALTZ [Suspect]
     Active Substance: IXEKIZUMAB
     Indication: PSORIASIS
     Dosage: ?          OTHER FREQUENCY:EVERY 4 WEEKS;?
     Route: 058
     Dates: start: 20190215
  2. ZANAFLEX, IBUPROFEN, ZOLPIDEM, PREDNISONE [Concomitant]

REACTIONS (2)
  - Neurosis [None]
  - Foot operation [None]

NARRATIVE: CASE EVENT DATE: 20190620
